FAERS Safety Report 5892599-3 (Version None)
Quarter: 2008Q3

REPORT INFORMATION
  Report Type: 
  Country: None (occurrence: None)
  Receive Date: 20080919
  Receipt Date: 20080919
  Transmission Date: 20090109
  Serious: Yes (Death, Hospitalization)
  Sender: FDA-Public Use
  Company Number: None

PATIENT
  Age: 51 Year
  Sex: Male
  Weight: 65.7716 kg

DRUGS (1)
  1. METHOTREXATE [Suspect]
     Indication: NON-HODGKIN'S LYMPHOMA
     Dates: start: 20080814, end: 20080817

REACTIONS (15)
  - ANAPHYLACTIC SHOCK [None]
  - BLOOD DISORDER [None]
  - BLOOD POTASSIUM INCREASED [None]
  - BLOOD PRESSURE DECREASED [None]
  - BODY TEMPERATURE DECREASED [None]
  - FLUID OVERLOAD [None]
  - GENERAL PHYSICAL HEALTH DETERIORATION [None]
  - HAEMORRHAGE [None]
  - LIVER INJURY [None]
  - MUCOUS MEMBRANE DISORDER [None]
  - PULMONARY HAEMORRHAGE [None]
  - RENAL FAILURE [None]
  - RENAL HAEMORRHAGE [None]
  - RESPIRATORY FAILURE [None]
  - THERAPEUTIC AGENT TOXICITY [None]
